FAERS Safety Report 10440937 (Version 1)
Quarter: 2014Q3

REPORT INFORMATION
  Report Type: Spontaneous
  Country: JP (occurrence: JP)
  Receive Date: 20140909
  Receipt Date: 20140909
  Transmission Date: 20150326
  Serious: Yes (Hospitalization)
  Sender: FDA-Public Use
  Company Number: JP-EISAI INC-E3810-07406-SPO-JP

PATIENT
  Age: 58 Year
  Sex: Male

DRUGS (3)
  1. RABECURE [Suspect]
     Active Substance: RABEPRAZOLE SODIUM
     Indication: HELICOBACTER INFECTION
     Dosage: UNKNOWN
     Route: 048
     Dates: start: 20140628, end: 20140703
  2. CLARITHROMYCIN. [Suspect]
     Active Substance: CLARITHROMYCIN
     Indication: HELICOBACTER INFECTION
     Dosage: UNKNOWN
     Route: 048
     Dates: start: 20140628, end: 20140703
  3. AMOXICILLIN HYDRATE [Suspect]
     Active Substance: AMOXICILLIN
     Indication: HELICOBACTER INFECTION
     Dosage: UNKNOWN
     Route: 048
     Dates: start: 20140628, end: 20140703

REACTIONS (1)
  - Enterocolitis haemorrhagic [Recovered/Resolved]

NARRATIVE: CASE EVENT DATE: 20140702
